FAERS Safety Report 4587000-6 (Version None)
Quarter: 2005Q1

REPORT INFORMATION
  Report Type: 
  Country: None (occurrence: None)
  Receive Date: 20050218
  Receipt Date: 20041201
  Transmission Date: 20050727
  Serious: Yes (Hospitalization, Disabling, Other)
  Sender: FDA-Public Use
  Company Number: US-MERCK-0412USA00216

PATIENT
  Age: 86 Year
  Sex: Female

DRUGS (3)
  1. VIOXX [Suspect]
     Indication: PAIN
     Route: 048
     Dates: start: 20020101, end: 20040401
  2. POTASSIUM (UNSPECIFIED) [Concomitant]
     Route: 065
  3. NORVASC [Concomitant]
     Route: 065

REACTIONS (7)
  - ABDOMINAL PAIN UPPER [None]
  - BLISTER [None]
  - DIFFICULTY IN WALKING [None]
  - HEMIPLEGIA [None]
  - HYPOAESTHESIA [None]
  - PHYSICAL DISABILITY [None]
  - PIGMENTATION DISORDER [None]
